FAERS Safety Report 11876325 (Version 1)
Quarter: 2015Q4

REPORT INFORMATION
  Report Type: Spontaneous
  Country: FR (occurrence: FR)
  Receive Date: 20151229
  Receipt Date: 20151229
  Transmission Date: 20160305
  Serious: Yes (Hospitalization)
  Sender: FDA-Public Use
  Company Number: FR-ELI_LILLY_AND_COMPANY-FR201512006691

PATIENT
  Age: 59 Year
  Sex: Female

DRUGS (3)
  1. ALIMTA [Suspect]
     Active Substance: PEMETREXED DISODIUM
     Indication: PRODUCT USED FOR UNKNOWN INDICATION
     Dosage: 500 MG/M2, CYCLICAL
     Route: 042
     Dates: start: 20151012, end: 20151013
  2. CISPLATINE [Concomitant]
     Active Substance: CISPLATIN
     Indication: PRODUCT USED FOR UNKNOWN INDICATION
     Dosage: UNK, UNKNOWN
     Route: 065
     Dates: start: 20151012, end: 20151012
  3. CARBOPLATINE [Suspect]
     Active Substance: CARBOPLATIN
     Indication: PRODUCT USED FOR UNKNOWN INDICATION
     Dosage: 226 MG, CYCLICAL
     Route: 042
     Dates: start: 20151013, end: 20151013

REACTIONS (6)
  - Acute kidney injury [Recovered/Resolved]
  - Rash maculo-papular [Unknown]
  - Dehydration [Unknown]
  - Burn oesophageal [Unknown]
  - Pancytopenia [Recovered/Resolved]
  - Mucosal inflammation [Unknown]

NARRATIVE: CASE EVENT DATE: 20151022
